FAERS Safety Report 8072946-7 (Version None)
Quarter: 2012Q1

REPORT INFORMATION
  Report Type: 
  Country: None (occurrence: None)
  Receive Date: 20120126
  Receipt Date: 20120119
  Transmission Date: 20120608
  Serious: Yes (Hospitalization)
  Sender: FDA-Public Use
  Company Number: 2012SP000248

PATIENT
  Age: 35 Year
  Sex: Female
  Weight: 63 kg

DRUGS (4)
  1. ATIVAN [Concomitant]
     Indication: ANXIETY
     Dates: start: 20090801
  2. TOPAMAX [Concomitant]
     Indication: MIGRAINE
  3. ALLEGRA [Concomitant]
     Indication: SEASONAL ALLERGY
  4. LATUDA [Suspect]
     Indication: SCHIZOAFFECTIVE DISORDER
     Route: 048
     Dates: start: 20110601, end: 20111201

REACTIONS (3)
  - ASTHENIA [None]
  - CHROMATURIA [None]
  - HEPATIC ENZYME INCREASED [None]
